FAERS Safety Report 8531268 (Version 4)
Quarter: 2018Q3

REPORT INFORMATION
  Report Type: Spontaneous
  Country: GR (occurrence: GR)
  Receive Date: 20120426
  Receipt Date: 20180827
  Transmission Date: 20181010
  Serious: Yes (Death, Life-Threatening, Other)
  Sender: FDA-Public Use
  Company Number: PHHY2012GR033779

PATIENT
  Age: 19 Year
  Sex: Female

DRUGS (4)
  1. BLEOMYCIN [Suspect]
     Active Substance: BLEOMYCIN SULFATE
     Indication: OVARIAN CANCER
     Dosage: 2 CYCLES
     Route: 065
  2. ETOPOSIDE. [Suspect]
     Active Substance: ETOPOSIDE
     Indication: OVARIAN CANCER
     Dosage: TWO CYCLES; FOLLOWED BY THREE CYCLES AFTER DECREASE IN CA125
     Route: 065
  3. CISPLATIN. [Suspect]
     Active Substance: CISPLATIN
     Indication: OVARIAN CANCER
     Dosage: TWO CYCLES; FOLLOWED BY THREE CYCLES AFTER DECREASE IN CA125
     Route: 065
  4. ZOLEDRONATE [Suspect]
     Active Substance: ZOLEDRONIC ACID
     Indication: HYPERCALCAEMIA
     Route: 065

REACTIONS (10)
  - Rectal haemorrhage [Unknown]
  - Death [Fatal]
  - Neoplasm recurrence [Unknown]
  - Product use in unapproved indication [Fatal]
  - Thrombocytopenia [Fatal]
  - Anaemia [Fatal]
  - Malignant neoplasm progression [Fatal]
  - Neoplasm progression [Fatal]
  - Neutropenia [Unknown]
  - Hepatic lesion [Unknown]
